FAERS Safety Report 17204361 (Version 1)
Quarter: 2019Q4

REPORT INFORMATION
  Report Type: Report from Study
  Country: US (occurrence: US)
  Receive Date: 20191226
  Receipt Date: 20191226
  Transmission Date: 20200122
  Serious: Yes (Hospitalization)
  Sender: FDA-Public Use
  Company Number: US-BIOGEN-2019BI00820019

PATIENT
  Sex: Female

DRUGS (1)
  1. TECFIDERA [Suspect]
     Active Substance: DIMETHYL FUMARATE
     Indication: MULTIPLE SCLEROSIS
     Dosage: MAINTENANCE DOSE
     Route: 048

REACTIONS (6)
  - Asthenia [Unknown]
  - Pyrexia [Unknown]
  - Gait disturbance [Unknown]
  - Visual acuity reduced [Unknown]
  - Cognitive disorder [Unknown]
  - Muscular weakness [Not Recovered/Not Resolved]
